FAERS Safety Report 21903521 (Version 1)
Quarter: 2023Q1

REPORT INFORMATION
  Report Type: Spontaneous
  Country: IN (occurrence: IN)
  Receive Date: 20230124
  Receipt Date: 20230124
  Transmission Date: 20230418
  Serious: Yes (Other)
  Sender: FDA-Public Use
  Company Number: IN-MYLANLABS-2023M1007816

PATIENT
  Age: 4 Year
  Sex: Female

DRUGS (5)
  1. DOXORUBICIN [Suspect]
     Active Substance: DOXORUBICIN
     Indication: Histiocytosis-lymphadenopathy plus syndrome
     Dosage: UNK, CHOP CHEMOTHERAPY
     Route: 065
  2. CYCLOPHOSPHAMIDE [Suspect]
     Active Substance: CYCLOPHOSPHAMIDE
     Indication: Histiocytosis-lymphadenopathy plus syndrome
     Dosage: UNK, CHOP CHEMOTHERAPY
     Route: 065
  3. VINCRISTINE [Suspect]
     Active Substance: VINCRISTINE
     Indication: Histiocytosis-lymphadenopathy plus syndrome
     Dosage: UNK, CHOP CHEMOTHERAPY
     Route: 065
  4. PREDNISOLONE [Suspect]
     Active Substance: PREDNISOLONE
     Indication: Histiocytosis-lymphadenopathy plus syndrome
     Dosage: UNK, CHOP CHEMOTHERAPY
     Route: 065
  5. SIROLIMUS [Suspect]
     Active Substance: SIROLIMUS
     Indication: Histiocytosis-lymphadenopathy plus syndrome
     Dosage: UNK, MAINTENANCE THERAPY
     Route: 065

REACTIONS (1)
  - Drug ineffective [Unknown]
